FAERS Safety Report 16535422 (Version 1)
Quarter: 2019Q3

REPORT INFORMATION
  Report Type: Spontaneous
  Country: IT (occurrence: IT)
  Receive Date: 20190705
  Receipt Date: 20190705
  Transmission Date: 20191004
  Serious: Yes (Other)
  Sender: FDA-Public Use
  Company Number: IT-LUPIN PHARMACEUTICALS INC.-2019-02654

PATIENT
  Age: 13 Year

DRUGS (1)
  1. METRONIDAZOLE. [Suspect]
     Active Substance: METRONIDAZOLE
     Indication: HYPERGLYCINAEMIA
     Dosage: 10 MILLIGRAM/KILOGRAM, QD (3 WK/MO)
     Route: 065

REACTIONS (1)
  - Peripheral sensorimotor neuropathy [Recovered/Resolved]
